FAERS Safety Report 7658470-1 (Version None)
Quarter: 2011Q3

REPORT INFORMATION
  Report Type: 
  Country: None (occurrence: None)
  Receive Date: 20110805
  Receipt Date: 20110802
  Transmission Date: 20111222
  Serious: Yes (Other)
  Sender: FDA-Public Use
  Company Number: US-AMGEN-USASP2011039266

PATIENT
  Age: 44 Year
  Sex: Male

DRUGS (2)
  1. NPLATE [Suspect]
     Indication: IDIOPATHIC THROMBOCYTOPENIC PURPURA
     Dates: start: 20110101
  2. B12                                /00056201/ [Concomitant]

REACTIONS (3)
  - HEADACHE [None]
  - ERYTHROMELALGIA [None]
  - NEUROPATHY PERIPHERAL [None]
